FAERS Safety Report 7121120-7 (Version None)
Quarter: 2010Q4

REPORT INFORMATION
  Report Type: 
  Country: None (occurrence: None)
  Receive Date: 20101124
  Receipt Date: 20100706
  Transmission Date: 20110411
  Serious: No
  Sender: FDA-Public Use
  Company Number: US-PFIZER INC-2010081805

PATIENT
  Sex: Female
  Weight: 64 kg

DRUGS (4)
  1. TIKOSYN [Suspect]
     Indication: ATRIAL FLUTTER
     Dosage: 250 UG, 2X/DAY
     Route: 048
     Dates: start: 20100601, end: 20100624
  2. GLIMEPIRIDE [Concomitant]
     Indication: DIABETES MELLITUS
     Dosage: 1 MG, UNK
  3. ZOCOR [Concomitant]
     Indication: BLOOD CHOLESTEROL INCREASED
     Dosage: 20 MG, DAILY
  4. VALSARTAN [Concomitant]
     Indication: HYPERTENSION
     Dosage: 320 MG, UNK

REACTIONS (3)
  - DIZZINESS [None]
  - DRUG INTOLERANCE [None]
  - HEADACHE [None]
